FAERS Safety Report 6032919-2 (Version None)
Quarter: 2009Q1

REPORT INFORMATION
  Report Type: 
  Country: None (occurrence: None)
  Receive Date: 20090105
  Receipt Date: 20080229
  Transmission Date: 20090719
  Serious: Yes (Other)
  Sender: FDA-Public Use
  Company Number: US-000368

PATIENT
  Age: 77 Year
  Sex: Female
  Weight: 99 kg

DRUGS (7)
  1. PROHANCE [Suspect]
     Indication: NUCLEAR MAGNETIC RESONANCE IMAGING BRAIN ABNORMAL
     Dosage: 2ML QD INTRAVENOUS (NOT OTHERWISE SPECIFIED)
     Route: 042
  2. LASIX [Concomitant]
  3. TOPROL (METROPROLOL SUCCINATE) [Concomitant]
  4. LIPITOR [Concomitant]
  5. ATIVAN [Concomitant]
  6. PLAVIX [Concomitant]
  7. ASPIRIN (ACETYLSALICYLIC ACID; PSEUDOEPHEDRINE HYDROCHLORIDE) [Concomitant]

REACTIONS (1)
  - HYPERSENSITIVITY [None]
